FAERS Safety Report 9385611 (Version 2)
Quarter: 2013Q3

REPORT INFORMATION
  Report Type: Spontaneous
  Country: DZ (occurrence: None)
  Receive Date: 20130701
  Receipt Date: 20130923
  Transmission Date: 20140515
  Serious: Yes (Hospitalization, Other)
  Sender: FDA-Public Use
  Company Number: 2013DZ0262

PATIENT
  Sex: Male

DRUGS (1)
  1. NITISINONE [Suspect]
     Indication: TYROSINAEMIA

REACTIONS (8)
  - Respiratory distress [None]
  - Paralysis flaccid [None]
  - Hepatic failure [None]
  - Prothrombin level decreased [None]
  - Cell death [None]
  - Guillain-Barre syndrome [None]
  - Treatment noncompliance [None]
  - Underdose [None]
